FAERS Safety Report 5817283-3 (Version None)
Quarter: 2008Q3

REPORT INFORMATION
  Report Type: 
  Country: None (occurrence: None)
  Receive Date: 20080722
  Receipt Date: 20080711
  Transmission Date: 20090109
  Serious: Yes (Other)
  Sender: FDA-Public Use
  Company Number: B0361403A

PATIENT
  Sex: Male

DRUGS (3)
  1. PAROXETINE HCL [Suspect]
     Route: 065
     Dates: start: 20010703
  2. PROPRANOLOL [Concomitant]
     Route: 065
  3. DIAZEPAM [Concomitant]
     Dates: start: 20020415

REACTIONS (39)
  - ABNORMAL BEHAVIOUR [None]
  - AGGRESSION [None]
  - AGITATION [None]
  - ALCOHOL USE [None]
  - AMNESIA [None]
  - ANGER [None]
  - ANXIETY [None]
  - CONDITION AGGRAVATED [None]
  - DEPRESSION [None]
  - DRUG WITHDRAWAL SYNDROME [None]
  - DYSKINESIA [None]
  - ERECTILE DYSFUNCTION [None]
  - FATIGUE [None]
  - FRUSTRATION [None]
  - HEADACHE [None]
  - ILL-DEFINED DISORDER [None]
  - INFLUENZA [None]
  - INITIAL INSOMNIA [None]
  - LETHARGY [None]
  - LOSS OF LIBIDO [None]
  - MOOD ALTERED [None]
  - MUSCLE SPASMS [None]
  - MYALGIA [None]
  - NIGHT SWEATS [None]
  - NIGHTMARE [None]
  - PALPITATIONS [None]
  - PANIC ATTACK [None]
  - PANIC REACTION [None]
  - PARAESTHESIA [None]
  - PARANOIA [None]
  - SLEEP DISORDER [None]
  - SLEEP PHASE RHYTHM DISTURBANCE [None]
  - SOCIAL AVOIDANT BEHAVIOUR [None]
  - SOLILOQUY [None]
  - SUICIDAL IDEATION [None]
  - TOBACCO USER [None]
  - TREATMENT NONCOMPLIANCE [None]
  - TREMOR [None]
  - WEIGHT DECREASED [None]
